FAERS Safety Report 18264576 (Version 1)
Quarter: 2020Q3

REPORT INFORMATION
  Report Type: Spontaneous
  Country: DE (occurrence: DE)
  Receive Date: 20200914
  Receipt Date: 20200914
  Transmission Date: 20201103
  Serious: Yes (Hospitalization)
  Sender: FDA-Public Use
  Company Number: DE-ELI_LILLY_AND_COMPANY-DE202009002797

PATIENT
  Age: 16 Year
  Sex: Female
  Weight: 64 kg

DRUGS (7)
  1. VENLAFAXIN [Suspect]
     Active Substance: VENLAFAXINE HYDROCHLORIDE
     Indication: SUICIDAL IDEATION
     Dosage: 20 DOSAGE FORM, DAILY
     Route: 048
     Dates: start: 20190910
  2. LEVOMEPROMAZIN [LEVOMEPROMAZINE] [Concomitant]
     Active Substance: LEVOMEPROMAZINE
     Indication: BORDERLINE PERSONALITY DISORDER
     Dosage: UNK
  3. CITALOPRAM [Concomitant]
     Active Substance: CITALOPRAM HYDROBROMIDE
     Indication: BORDERLINE PERSONALITY DISORDER
     Dosage: 1 DOSAGE FORM, DAILY
     Route: 048
  4. OLANZAPINE. [Suspect]
     Active Substance: OLANZAPINE
     Indication: SUICIDAL IDEATION
     Dosage: 4 DOSAGE FORM, DAILY
     Route: 048
     Dates: start: 20190910
  5. RISPERIDON [Concomitant]
     Active Substance: RISPERIDONE
     Indication: BORDERLINE PERSONALITY DISORDER
     Dosage: 1 DOSAGE FORM, DAILY
  6. RISPERIDON [Suspect]
     Active Substance: RISPERIDONE
     Indication: SUICIDAL IDEATION
     Dosage: 10 DOSAGE FORM, DAILY
     Route: 048
     Dates: start: 20190910
  7. L?THYROXIN [LEVOTHYROXINE] [Concomitant]
     Active Substance: LEVOTHYROXINE SODIUM
     Indication: HYPOTHYROIDISM
     Dosage: 0.5 DOSAGE FORM, DAILY

REACTIONS (6)
  - Circulatory collapse [Unknown]
  - Toxicity to various agents [Unknown]
  - Syncope [Unknown]
  - Somnolence [Unknown]
  - Intentional overdose [Unknown]
  - Off label use [Unknown]

NARRATIVE: CASE EVENT DATE: 20190910
